FAERS Safety Report 9181928 (Version 1)
Quarter: 2013Q1

REPORT INFORMATION
  Report Type: Report from Study
  Country: DE (occurrence: DE)
  Receive Date: 20130322
  Receipt Date: 20130322
  Transmission Date: 20140127
  Serious: Yes (Hospitalization)
  Sender: FDA-Public Use
  Company Number: DE-ABBOTT-13P-062-1064771-00

PATIENT
  Age: 54 Year
  Sex: Female
  Weight: 70 kg

DRUGS (3)
  1. HUMIRA [Suspect]
     Indication: ANKYLOSING SPONDYLITIS
     Route: 058
     Dates: end: 201203
  2. HUMIRA [Suspect]
     Route: 058
     Dates: start: 201205, end: 201209
  3. ARCOXIA [Concomitant]
     Indication: PRODUCT USED FOR UNKNOWN INDICATION
     Dosage: ON DEMAND

REACTIONS (4)
  - Meniscus injury [Recovered/Resolved]
  - Synovitis [Recovered/Resolved]
  - Chondropathy [Recovered/Resolved]
  - Nasopharyngitis [Recovered/Resolved]
